FAERS Safety Report 16204355 (Version 1)
Quarter: 2019Q2

REPORT INFORMATION
  Report Type: Spontaneous
  Country: DE (occurrence: DE)
  Receive Date: 20190416
  Receipt Date: 20190416
  Transmission Date: 20190711
  Serious: Yes (Congenital Anomaly, Other)
  Sender: FDA-Public Use
  Company Number: DE-UCBSA-2019015255

PATIENT
  Age: 0 Year
  Sex: Female
  Weight: 2.6 kg

DRUGS (3)
  1. LEVETIRACETAM. [Suspect]
     Active Substance: LEVETIRACETAM
     Indication: EPILEPSY
     Dosage: 1500 MG IN MORNING AND 1750 MG IN EVENING, 2X/DAY (BID)
     Route: 064
     Dates: start: 2018, end: 20181217
  2. METOPROLOL SUCCINATE. [Suspect]
     Active Substance: METOPROLOL SUCCINATE
     Indication: TACHYCARDIA
     Dosage: 47.5 MG, 1 DAY
     Route: 064
  3. NEBIVOLOL. [Concomitant]
     Active Substance: NEBIVOLOL
     Indication: TACHYCARDIA
     Dosage: 2.5 [MG/D ]
     Route: 064

REACTIONS (3)
  - Microcephaly [Not Recovered/Not Resolved]
  - Small for dates baby [Not Recovered/Not Resolved]
  - Maternal exposure during pregnancy [Unknown]

NARRATIVE: CASE EVENT DATE: 2018
